FAERS Safety Report 11320137 (Version 4)
Quarter: 2015Q3

REPORT INFORMATION
  Report Type: Spontaneous
  Country: US (occurrence: US)
  Receive Date: 20150729
  Receipt Date: 20150916
  Transmission Date: 20151125
  Serious: Yes (Hospitalization)
  Sender: FDA-Public Use
  Company Number: US-ASTRAZENECA-2015SE72524

PATIENT
  Sex: Female

DRUGS (1)
  1. LYNPARZA [Suspect]
     Active Substance: OLAPARIB
     Indication: OVARIAN CANCER
     Route: 048

REACTIONS (8)
  - Chest pain [Recovered/Resolved]
  - Muscular weakness [Unknown]
  - Cough [Not Recovered/Not Resolved]
  - Anaemia [Recovering/Resolving]
  - Tremor [Unknown]
  - Hypertension [Not Recovered/Not Resolved]
  - Urticaria [Unknown]
  - Heart rate increased [Unknown]
